FAERS Safety Report 17490757 (Version 1)
Quarter: 2020Q1

REPORT INFORMATION
  Report Type: Spontaneous
  Country: FR (occurrence: FR)
  Receive Date: 20200303
  Receipt Date: 20200303
  Transmission Date: 20200409
  Serious: Yes (Disabling)
  Sender: FDA-Public Use
  Company Number: FR-009507513-2002FRA009077

PATIENT
  Age: 75 Year
  Sex: Male
  Weight: 70 kg

DRUGS (2)
  1. CELESTENE (BETAMETHASONE) [Suspect]
     Active Substance: BETAMETHASONE
     Indication: ARTHRALGIA
     Dosage: 3MG/J, DISPERSIBLE BREAKABLE TABLET
     Route: 048
     Dates: start: 2019
  2. CORTANCYL [Suspect]
     Active Substance: PREDNISONE
     Indication: ARTHRALGIA
     Dosage: VARIABLE OVER TIME
     Route: 048
     Dates: end: 2019

REACTIONS (2)
  - Cushing^s syndrome [Not Recovered/Not Resolved]
  - Osteoporotic fracture [Recovered/Resolved with Sequelae]

NARRATIVE: CASE EVENT DATE: 201912
